FAERS Safety Report 4602884-0 (Version None)
Quarter: 2005Q1

REPORT INFORMATION
  Report Type: 
  Country: None (occurrence: None)
  Receive Date: 20050307
  Receipt Date: 20050211
  Transmission Date: 20050727
  Serious: Yes (Hospitalization)
  Sender: FDA-Public Use
  Company Number: GBR-2005-0001550

PATIENT
  Age: 60 Year
  Sex: Female

DRUGS (2)
  1. OXYCONTIN [Suspect]
     Indication: CANCER PAIN
     Dosage: 10 MG, Q12H, ORAL
     Route: 048
  2. OXYNORM CAPSULES (OXYCODONE HYDROCHLORIDE) IR CAPSULE [Suspect]
     Dosage: PM

REACTIONS (2)
  - BRONCHOSPASM [None]
  - LOWER RESPIRATORY TRACT INFECTION [None]
